FAERS Safety Report 13905474 (Version 1)
Quarter: 2017Q3

REPORT INFORMATION
  Report Type: Spontaneous
  Country: US (occurrence: None)
  Receive Date: 20170821
  Receipt Date: 20170821
  Transmission Date: 20171127
  Serious: No
  Sender: FDA-Public Use
  Company Number: None

PATIENT
  Age: 77 Year

DRUGS (1)
  1. GABAPENTIN 600MG [Suspect]
     Active Substance: GABAPENTIN

REACTIONS (6)
  - Stomatitis [None]
  - Eye infection [None]
  - Fatigue [None]
  - Peripheral swelling [None]
  - Mental impairment [None]
  - Gait disturbance [None]
